FAERS Safety Report 26201001 (Version 1)
Quarter: 2025Q4

REPORT INFORMATION
  Report Type: Spontaneous
  Country: GB (occurrence: GB)
  Receive Date: 20251226
  Receipt Date: 20251226
  Transmission Date: 20260119
  Serious: Yes (Other)
  Sender: TEVA
  Company Number: None

PATIENT
  Age: 56 Year
  Sex: Female
  Weight: 146 kg

DRUGS (11)
  1. DOXYCYCLINE [Suspect]
     Active Substance: DOXYCYCLINE
     Indication: Ill-defined disorder
     Route: 065
     Dates: start: 20251216
  2. METFORMIN [Concomitant]
     Active Substance: METFORMIN HYDROCHLORIDE
     Indication: Ill-defined disorder
     Dosage: DAILY DOSE: 4 DOSAGE FORM
     Dates: start: 20250812
  3. BECLOMETHASONE DIPROPIONATE\FORMOTEROL FUMARATE [Concomitant]
     Active Substance: BECLOMETHASONE DIPROPIONATE\FORMOTEROL FUMARATE
     Indication: Ill-defined disorder
     Dosage: INHALE TWO PUFFS TWICE A DAY AS DIRECTED- CAN U...
     Dates: start: 20250812
  4. BUMETANIDE [Concomitant]
     Active Substance: BUMETANIDE
     Indication: Ill-defined disorder
     Dosage: ONE TABLET TO BE TAKEN IN THE MORNING AND ONCE ...
     Dates: start: 20250812
  5. PREDNISOLONE [Concomitant]
     Active Substance: PREDNISOLONE
     Indication: Ill-defined disorder
     Dosage: DAILY DOSE: 6 DOSAGE FORM
     Dates: start: 20251216
  6. AMOXICILLIN [Concomitant]
     Active Substance: AMOXICILLIN
     Indication: Ill-defined disorder
     Dosage: ACUTE COUGH (ADULTS): ONE CAPSULE TO BE TAKEN T...
     Dates: start: 20251216
  7. ALBUTEROL [Concomitant]
     Active Substance: ALBUTEROL
     Indication: Ill-defined disorder
     Dosage: INHALE ONE OR TWO PUFFS AS NEEDED FOR ASTHMA SY...
     Dates: start: 20250812
  8. CARBOCYSTEINE [Concomitant]
     Active Substance: CARBOCYSTEINE
     Indication: Ill-defined disorder
     Dosage: TWO CAPSULES TO BE TAKEN THREE TIMES A DAY  TO ...
     Dates: start: 20250812
  9. LANSOPRAZOLE [Concomitant]
     Active Substance: LANSOPRAZOLE
     Indication: Ill-defined disorder
     Dates: start: 20250812
  10. HYDROXOCOBALAMIN [Concomitant]
     Active Substance: HYDROXOCOBALAMIN
     Indication: Ill-defined disorder
     Dosage: ONE THREE TIMES PER WEEK FOR 2 WEEKS THEN ONCE ...
     Dates: start: 20250924, end: 20250925
  11. ATORVASTATIN [Concomitant]
     Active Substance: ATORVASTATIN
     Indication: Ill-defined disorder
     Dosage: DAILY DOSE: 2 DOSAGE FORM
     Dates: start: 20250812

REACTIONS (1)
  - Swelling face [Recovered/Resolved]

NARRATIVE: CASE EVENT DATE: 20251218
